FAERS Safety Report 9351191 (Version 1)
Quarter: 2013Q2

REPORT INFORMATION
  Report Type: Spontaneous
  Country: JP (occurrence: JP)
  Receive Date: 20130617
  Receipt Date: 20130617
  Transmission Date: 20140414
  Serious: Yes (Other)
  Sender: FDA-Public Use
  Company Number: JP-PFIZER INC-2013179627

PATIENT
  Age: 78 Year
  Sex: Female

DRUGS (2)
  1. AMLODIN [Suspect]
     Dosage: UNK
  2. CLARITHROMYCIN [Concomitant]
     Dosage: UNK

REACTIONS (1)
  - Renal atrophy [Unknown]
